FAERS Safety Report 8480913-4 (Version None)
Quarter: 2012Q3

REPORT INFORMATION
  Report Type: 
  Country: None (occurrence: None)
  Receive Date: 20120702
  Receipt Date: 20120620
  Transmission Date: 20120928
  Serious: Yes (Hospitalization)
  Sender: FDA-Public Use
  Company Number: US-ELI_LILLY_AND_COMPANY-US201101002984

PATIENT
  Sex: Male

DRUGS (7)
  1. FORTEO [Suspect]
     Dosage: 20 UG, QD
     Route: 065
  2. FORTEO [Suspect]
     Dosage: 20 UG, QD
     Route: 065
  3. FORTEO [Suspect]
     Indication: OSTEOPOROSIS
     Dosage: 20 UG, QD
     Route: 065
  4. NEURONTIN [Concomitant]
  5. PREDNISONE TAB [Concomitant]
     Indication: ANKYLOSING SPONDYLITIS
  6. IBUPROFEN [Concomitant]
  7. ZYPREXA [Concomitant]

REACTIONS (6)
  - RIB FRACTURE [None]
  - HEART RATE INCREASED [None]
  - DRUG DOSE OMISSION [None]
  - MALAISE [None]
  - DIZZINESS [None]
  - HOSPITALISATION [None]
